FAERS Safety Report 11248929 (Version 1)
Quarter: 2015Q3

REPORT INFORMATION
  Report Type: Spontaneous
  Country: US (occurrence: US)
  Receive Date: 20150708
  Receipt Date: 20150708
  Transmission Date: 20151125
  Serious: No
  Sender: FDA-Public Use
  Company Number: US-ELI_LILLY_AND_COMPANY-US200704000122

PATIENT
  Age: 55 Year

DRUGS (3)
  1. FOLIC ACID. [Concomitant]
     Active Substance: FOLIC ACID
     Indication: VITAMIN SUPPLEMENTATION
  2. VITAMIN B12 [Concomitant]
     Active Substance: CYANOCOBALAMIN
     Indication: VITAMIN SUPPLEMENTATION
  3. ALIMTA [Suspect]
     Active Substance: PEMETREXED DISODIUM
     Indication: SQUAMOUS CELL CARCINOMA

REACTIONS (5)
  - Cough [Unknown]
  - Pyrexia [Unknown]
  - Nasopharyngitis [Unknown]
  - Chills [Unknown]
  - Nasal congestion [Unknown]

NARRATIVE: CASE EVENT DATE: 200703
